FAERS Safety Report 16573862 (Version 2)
Quarter: 2020Q2

REPORT INFORMATION
  Report Type: Spontaneous
  Country: US (occurrence: US)
  Receive Date: 20190715
  Receipt Date: 20200408
  Transmission Date: 20200713
  Serious: No
  Sender: FDA-Public Use
  Company Number: US-STEMLINE THERAPEUTICS, INC.-2019ST000005

PATIENT
  Age: 28 Year
  Sex: Male
  Weight: 64.8 kg

DRUGS (2)
  1. ELZONRIS [Suspect]
     Active Substance: TAGRAXOFUSP-ERZS
     Indication: BLASTIC PLASMACYTOID DENDRITIC CELL NEOPLASIA
     Dosage: 1 VIAL PER DAY
     Route: 042
     Dates: start: 20190211, end: 20190215
  2. ELZONRIS [Suspect]
     Active Substance: TAGRAXOFUSP-ERZS
     Route: 042
     Dates: start: 20190506, end: 20190510

REACTIONS (2)
  - Therapeutic response shortened [Recovered/Resolved]
  - Skin lesion inflammation [Unknown]
